FAERS Safety Report 22071630 (Version 6)
Quarter: 2023Q2

REPORT INFORMATION
  Report Type: Spontaneous
  Country: US (occurrence: US)
  Receive Date: 20230307
  Receipt Date: 20230523
  Transmission Date: 20230721
  Serious: Yes (Other)
  Sender: FDA-Public Use
  Company Number: US-PFIZER INC-PV202300042628

PATIENT
  Age: 65 Year
  Sex: Female

DRUGS (2)
  1. INLYTA [Suspect]
     Active Substance: AXITINIB
     Dosage: UNK
     Dates: start: 20230301
  2. INLYTA [Suspect]
     Active Substance: AXITINIB
     Dosage: UNK

REACTIONS (12)
  - Hepatitis [Unknown]
  - Aphonia [Not Recovered/Not Resolved]
  - Back pain [Not Recovered/Not Resolved]
  - Dysphonia [Unknown]
  - Secretion discharge [Unknown]
  - Hypertension [Unknown]
  - Weight decreased [Unknown]
  - Dry skin [Unknown]
  - Diarrhoea [Unknown]
  - Glossodynia [Unknown]
  - Dry mouth [Not Recovered/Not Resolved]
  - Malaise [Unknown]

NARRATIVE: CASE EVENT DATE: 20230301
